FAERS Safety Report 10153319 (Version 1)
Quarter: 2014Q2

REPORT INFORMATION
  Report Type: Report from Study
  Country: BR (occurrence: BR)
  Receive Date: 20140505
  Receipt Date: 20140505
  Transmission Date: 20141212
  Serious: Yes (Hospitalization, Other)
  Sender: FDA-Public Use
  Company Number: PHHY2014BR053617

PATIENT
  Sex: Male
  Weight: 75 kg

DRUGS (2)
  1. DIOVAN HCT [Suspect]
     Indication: HYPERTENSION
     Dosage: 1 TABLET (160/25 MG), DAILY
     Route: 048
     Dates: start: 200702
  2. DIOVAN HCT [Suspect]
     Dosage: 1 TABLET (160/25 MG), DAILY
     Route: 048

REACTIONS (6)
  - Abdominal distension [Recovering/Resolving]
  - Pallor [Recovering/Resolving]
  - Pruritus [Recovering/Resolving]
  - Dyspnoea [Recovering/Resolving]
  - Cerebrovascular accident [Recovering/Resolving]
  - Speech disorder [Recovering/Resolving]
